FAERS Safety Report 9008557 (Version 1)
Quarter: 2013Q1

REPORT INFORMATION
  Report Type: Spontaneous
  Country: US (occurrence: US)
  Receive Date: 20130111
  Receipt Date: 20130111
  Transmission Date: 20140127
  Serious: Yes (Death)
  Sender: FDA-Public Use
  Company Number: US-PFIZER INC-2013007075

PATIENT
  Age: 66 Year
  Sex: Female

DRUGS (11)
  1. OXYCODONE HYDROCHLORIDE [Suspect]
  2. TRIAZOLAM [Suspect]
  3. LITHIUM [Suspect]
  4. ESCITALOPRAM [Suspect]
  5. METHYLPHENIDATE HYDROCHLORIDE [Suspect]
     Dosage: UNK
  6. ARIPIPRAZOLE [Suspect]
  7. SIMVASTATIN [Suspect]
  8. VALACICLOVIR [Suspect]
     Dosage: UNK
  9. PROPOXYPHENE [Suspect]
  10. HYDROCODONE [Suspect]
  11. ACETAMINOPHEN [Suspect]

REACTIONS (3)
  - Completed suicide [Fatal]
  - Respiratory arrest [Fatal]
  - Cardiac arrest [Fatal]
